FAERS Safety Report 4782424-6 (Version None)
Quarter: 2005Q3

REPORT INFORMATION
  Report Type: 
  Country: None (occurrence: None)
  Receive Date: 20050929
  Receipt Date: 20040929
  Transmission Date: 20060218
  Serious: No
  Sender: FDA-Public Use
  Company Number: 383448

PATIENT
  Age: 70 Year
  Sex: Female

DRUGS (2)
  1. COREG [Suspect]
     Indication: HYPERTENSION
     Dosage: 12.5MG TWICE PER DAY
     Route: 048
  2. BENICAR [Concomitant]

REACTIONS (1)
  - DRUG INEFFECTIVE [None]
